FAERS Safety Report 8050458-4 (Version None)
Quarter: 2012Q1

REPORT INFORMATION
  Report Type: 
  Country: None (occurrence: None)
  Receive Date: 20120117
  Receipt Date: 20110406
  Transmission Date: 20120608
  Serious: Yes (Death, Hospitalization)
  Sender: FDA-Public Use
  Company Number: TZ-BAXTER-2011BH010713

PATIENT
  Age: 16 Month
  Sex: Male
  Weight: 10 kg

DRUGS (5)
  1. COARTEM [Concomitant]
     Indication: PYREXIA
     Route: 065
     Dates: start: 20100901, end: 20100923
  2. ALBUMIN (HUMAN) [Suspect]
     Indication: FLUID REPLACEMENT
     Route: 040
     Dates: start: 20100923, end: 20100923
  3. GENTAMICIN [Concomitant]
     Indication: PRODUCT USED FOR UNKNOWN INDICATION
     Route: 042
  4. AMPICILLIN [Concomitant]
     Indication: PRODUCT USED FOR UNKNOWN INDICATION
     Route: 042
  5. ALBUMIN (HUMAN) [Suspect]
     Route: 040
     Dates: start: 20100923, end: 20100923

REACTIONS (2)
  - RESPIRATORY FAILURE [None]
  - PULMONARY OEDEMA [None]
